FAERS Safety Report 7730650-6 (Version None)
Quarter: 2011Q3

REPORT INFORMATION
  Report Type: 
  Country: None (occurrence: None)
  Receive Date: 20110901
  Receipt Date: 20110901
  Transmission Date: 20111222
  Serious: Yes (Disabling)
  Sender: FDA-Public Use
  Company Number: None

PATIENT
  Age: 56 Year
  Sex: Female
  Weight: 94.8018 kg

DRUGS (2)
  1. ARIMIDEX (ANASTROZOLE) 1MG ASTRAZENECA [Suspect]
  2. ORTHOVISC [Concomitant]

REACTIONS (5)
  - HYPERTENSION [None]
  - ARTHRALGIA [None]
  - GAIT DISTURBANCE [None]
  - BACK PAIN [None]
  - WALKING AID USER [None]
